FAERS Safety Report 8930217 (Version 1)
Quarter: 2012Q4

REPORT INFORMATION
  Report Type: 
  Country: DK (occurrence: CH)
  Receive Date: 20121128
  Receipt Date: 20121128
  Transmission Date: 20130627
  Serious: Yes (Other)
  Sender: FDA-Public Use
  Company Number: CH-FRI-1000040625

PATIENT
  Sex: Female

DRUGS (3)
  1. ESCITALOPRAM [Suspect]
     Indication: DEPRESSION
     Dosage: 5 mg
     Route: 048
     Dates: start: 201205, end: 201208
  2. ESCITALOPRAM [Suspect]
     Indication: DEPRESSION
     Dosage: 25 mg
     Route: 048
     Dates: start: 201208, end: 20121016
  3. TRAMAL [Concomitant]
     Dosage: 37.5 mg
     Route: 048
     Dates: start: 20121023, end: 20121023

REACTIONS (3)
  - Ecchymosis [Recovered/Resolved]
  - Platelet adhesiveness decreased [Unknown]
  - Prescribed overdose [Unknown]
